FAERS Safety Report 8271202-1 (Version None)
Quarter: 2012Q1

REPORT INFORMATION
  Report Type: 
  Country: None (occurrence: None)
  Receive Date: 20120308
  Receipt Date: 20111102
  Transmission Date: 20120608
  Serious: Yes (Other)
  Sender: FDA-Public Use
  Company Number: PHEH2011US008744

PATIENT

DRUGS (2)
  1. ANTIDEPRESSANTS (NO INGREDIENTS/SUBSTANCE) [Concomitant]
  2. FANAPT [Suspect]
     Dosage: ORAL
     Route: 048

REACTIONS (1)
  - ELECTROCARDIOGRAM QT PROLONGED [None]
